FAERS Safety Report 9870448 (Version 1)
Quarter: 2014Q1

REPORT INFORMATION
  Report Type: Spontaneous
  Country: US (occurrence: US)
  Receive Date: 20140205
  Receipt Date: 20140205
  Transmission Date: 20141002
  Serious: Yes (Other)
  Sender: FDA-Public Use
  Company Number: US-PFIZER INC-2014029802

PATIENT
  Sex: Female
  Weight: 86.17 kg

DRUGS (3)
  1. ADVIL [Suspect]
     Indication: PAIN
     Dosage: 400 MG, EVERY 4 HRS
  2. ADVIL [Suspect]
     Indication: SCOLIOSIS
  3. DIOVAN (VALSARTAN) [Concomitant]
     Indication: HYPERTENSION
     Dosage: 320 MG, 1X/DAY

REACTIONS (1)
  - Breast cancer female [Unknown]
